FAERS Safety Report 5015398-3 (Version None)
Quarter: 2006Q2

REPORT INFORMATION
  Report Type: 
  Country: None (occurrence: None)
  Receive Date: 20060601
  Receipt Date: 20060525
  Transmission Date: 20061013
  Serious: Yes (Death, Hospitalization)
  Sender: FDA-Public Use
  Company Number: PHEH2006US06927

PATIENT
  Sex: Female

DRUGS (3)
  1. VERAPAMIL [Suspect]
     Dosage: UNK
  2. BETA BLOCKING AGENTS [Suspect]
     Dosage: UNK
  3. DIOVAN [Suspect]
     Dosage: UNK
     Route: 048

REACTIONS (7)
  - ATRIOVENTRICULAR BLOCK [None]
  - BLOOD PRESSURE INCREASED [None]
  - CARDIAC FAILURE CONGESTIVE [None]
  - COUGH [None]
  - HYPOTENSION [None]
  - MYOCARDIAL INFARCTION [None]
  - VOMITING [None]
